FAERS Safety Report 8127327-4 (Version None)
Quarter: 2012Q1

REPORT INFORMATION
  Report Type: 
  Country: None (occurrence: None)
  Receive Date: 20120210
  Receipt Date: 20120202
  Transmission Date: 20120608
  Serious: Yes (Other)
  Sender: FDA-Public Use
  Company Number: JP-SHIRE-ALL1-2011-04532

PATIENT
  Age: 81 Year
  Sex: Female

DRUGS (19)
  1. LANTHANUM CARBONATE [Suspect]
     Indication: HYPERPHOSPHATAEMIA
     Dosage: 1500 MG, UNKNOWN (IMMEDIATELY AFTER MEALS)
     Route: 048
     Dates: start: 20090608, end: 20090611
  2. ALLOPURINOL [Concomitant]
     Indication: PRODUCT USED FOR UNKNOWN INDICATION
     Dosage: 100 MG, UNKNOWN
     Route: 048
  3. RENAGEL [Concomitant]
     Indication: HYPERPHOSPHATAEMIA
     Dosage: 2250 MG, UNKNOWN
     Route: 048
  4. ADALAT CC [Concomitant]
     Indication: PRODUCT USED FOR UNKNOWN INDICATION
     Dosage: 5 MG, UNKNOWN
     Route: 048
     Dates: start: 20090602
  5. LASIX [Concomitant]
     Indication: PRODUCT USED FOR UNKNOWN INDICATION
     Dosage: 40 MG, UNKNOWN
     Route: 048
  6. YODEL [Concomitant]
     Indication: PRODUCT USED FOR UNKNOWN INDICATION
     Dosage: 160 MG, UNKNOWN
     Route: 048
  7. OXAROL [Concomitant]
     Dosage: 1 DF, UNKNOWN
     Route: 042
     Dates: start: 20090612, end: 20091213
  8. OXAROL [Concomitant]
     Dosage: 1 DF, UNKNOWN
     Route: 042
     Dates: start: 20091214
  9. OXAROL [Concomitant]
     Dosage: 2.5 ?G, UNKNOWN
     Route: 042
     Dates: start: 20100205
  10. DILTIAZEM HCL [Concomitant]
     Indication: PRODUCT USED FOR UNKNOWN INDICATION
     Dosage: 30 MG, UNKNOWN
     Route: 048
  11. ASPIRIN [Concomitant]
     Indication: PRODUCT USED FOR UNKNOWN INDICATION
     Dosage: 100 MG, UNKNOWN
     Route: 048
  12. NESPO [Concomitant]
     Indication: PRODUCT USED FOR UNKNOWN INDICATION
     Dosage: 40 ?G, UNKNOWN
     Route: 042
  13. OXAROL [Concomitant]
     Indication: PRODUCT USED FOR UNKNOWN INDICATION
     Dosage: 1 DF, UNKNOWN
     Route: 042
     Dates: start: 20090529, end: 20090611
  14. DIOVAN [Concomitant]
     Indication: PRODUCT USED FOR UNKNOWN INDICATION
     Dosage: 80 MG, UNKNOWN
     Route: 048
     Dates: start: 20090608
  15. SELBEX [Concomitant]
     Indication: PRODUCT USED FOR UNKNOWN INDICATION
     Dosage: 1.5 MG, UNKNOWN
     Route: 048
  16. AMLODIPINE [Concomitant]
     Indication: PRODUCT USED FOR UNKNOWN INDICATION
     Dosage: 2.5 MG, UNKNOWN
     Route: 048
  17. LANTHANUM CARBONATE [Suspect]
     Dosage: 750 MG, UNKNOWN
     Route: 048
     Dates: start: 20090612, end: 20090809
  18. LANTHANUM CARBONATE [Suspect]
     Dosage: 1500 MG, UNKNOWN
     Route: 048
     Dates: start: 20090810, end: 20110520
  19. OXAROL [Concomitant]
     Dosage: 5 MCG/2.5MCG, UNKNOWN
     Route: 042
     Dates: start: 20100108

REACTIONS (2)
  - ABDOMINAL DISCOMFORT [None]
  - MELAENA [None]
